FAERS Safety Report 23091133 (Version 2)
Quarter: 2023Q4

REPORT INFORMATION
  Report Type: Spontaneous
  Country: JP (occurrence: JP)
  Receive Date: 20231020
  Receipt Date: 20231130
  Transmission Date: 20240109
  Serious: Yes (Other)
  Sender: FDA-Public Use
  Company Number: JP-PFIZER INC-PV202300172358

PATIENT
  Age: 64 Year
  Sex: Female
  Weight: 41.5 kg

DRUGS (9)
  1. XELJANZ [Suspect]
     Active Substance: TOFACITINIB CITRATE
     Indication: Colitis ulcerative
     Dosage: 10 MG, 2X/DAY
     Route: 048
     Dates: start: 20230208, end: 20230426
  2. XELJANZ [Suspect]
     Active Substance: TOFACITINIB CITRATE
     Dosage: 5 MG, 2X/DAY
     Route: 048
     Dates: start: 20230426, end: 20231012
  3. XELJANZ [Suspect]
     Active Substance: TOFACITINIB CITRATE
     Dosage: 5 MG, 1X/DAY
  4. LIALDA [Concomitant]
     Active Substance: MESALAMINE
     Dosage: 1200 MG X4, DAILY
     Route: 048
     Dates: start: 20170329
  5. CALCIUM POLYCARBOPHIL [Concomitant]
     Active Substance: CALCIUM POLYCARBOPHIL
     Dosage: 500 MG X6, DAILY
     Route: 048
     Dates: start: 20120913
  6. BIO-THREE [Concomitant]
     Active Substance: HERBALS
     Dosage: 3 DF, DAILY (STARTED BEFORE 24JUN2020)
     Route: 048
  7. GASCON [DIMETICONE] [Concomitant]
     Dosage: 40 MG X3, DAILY (STARTED BEFORE 24JUN2020)
     Route: 048
  8. MOSAPRIDE CITRATE [Concomitant]
     Active Substance: MOSAPRIDE CITRATE
     Dosage: 15 MG X3, DAILY (STARTED BEFORE 24JUN2020)
     Route: 048
  9. SODIUM FERROUS CITRATE [Concomitant]
     Active Substance: SODIUM FERROUS CITRATE
     Dosage: 50 MG, 1X/DAY
     Route: 048
     Dates: start: 20210512

REACTIONS (2)
  - Granulocytopenia [Recovered/Resolved]
  - Leukopenia [Recovered/Resolved]

NARRATIVE: CASE EVENT DATE: 20231011
